FAERS Safety Report 16578064 (Version 1)
Quarter: 2019Q3

REPORT INFORMATION
  Report Type: Spontaneous
  Country: US (occurrence: US)
  Receive Date: 20190603
  Receipt Date: 20190603
  Transmission Date: 20191004
  Serious: No
  Sender: FDA-Public Use
  Company Number: None

PATIENT
  Sex: Male

DRUGS (1)
  1. PACLITAXEL. [Suspect]
     Active Substance: PACLITAXEL
     Indication: NASOPHARYNGEAL CANCER
     Dosage: ?          OTHER FREQUENCY:EVERY 21 DAYS;?
     Dates: start: 20190131

REACTIONS (4)
  - Hypoaesthesia [None]
  - Dyspraxia [None]
  - Pain [None]
  - Asthenia [None]
